FAERS Safety Report 20233517 (Version 2)
Quarter: 2022Q3

REPORT INFORMATION
  Report Type: Spontaneous
  Country: US (occurrence: US)
  Receive Date: 20211227
  Receipt Date: 20220711
  Transmission Date: 20221027
  Serious: Yes (Death, Other)
  Sender: FDA-Public Use
  Company Number: US-BRISTOL-MYERS SQUIBB COMPANY-BMS-2021-141542

PATIENT
  Age: 43 Year
  Sex: Male
  Weight: 72 kg

DRUGS (2)
  1. OPDIVO [Suspect]
     Active Substance: NIVOLUMAB
     Indication: Product used for unknown indication
     Dosage: 240 MILLIGRAM, Q3WK
     Route: 048
  2. YERVOY [Suspect]
     Active Substance: IPILIMUMAB
     Indication: Product used for unknown indication
     Dosage: 75 MILLIGRAM, Q3WK
     Route: 048

REACTIONS (2)
  - Death [Fatal]
  - Intentional product use issue [Unknown]

NARRATIVE: CASE EVENT DATE: 20211220
